FAERS Safety Report 10883540 (Version 2)
Quarter: 2015Q3

REPORT INFORMATION
  Report Type: Report from Study
  Country: DE (occurrence: DE)
  Receive Date: 20150303
  Receipt Date: 20150902
  Transmission Date: 20151125
  Serious: Yes (Other)
  Sender: FDA-Public Use
  Company Number: DE-ROCHE-1547397

PATIENT
  Age: 91 Year
  Sex: Female
  Weight: 68 kg

DRUGS (2)
  1. RANIBIZUMAB [Suspect]
     Active Substance: RANIBIZUMAB
     Indication: NEOVASCULAR AGE-RELATED MACULAR DEGENERATION
     Route: 050
     Dates: start: 20090630
  2. BEVACIZUMAB [Suspect]
     Active Substance: BEVACIZUMAB
     Indication: NEOVASCULAR AGE-RELATED MACULAR DEGENERATION
     Route: 050

REACTIONS (1)
  - Neovascular age-related macular degeneration [Unknown]

NARRATIVE: CASE EVENT DATE: 20150120
